FAERS Safety Report 4488206-7 (Version None)
Quarter: 2004Q4

REPORT INFORMATION
  Report Type: 
  Country: None (occurrence: None)
  Receive Date: 20041028
  Receipt Date: 20041021
  Transmission Date: 20050328
  Serious: Yes (Hospitalization)
  Sender: FDA-Public Use
  Company Number: CA-AMGEN-US096638

PATIENT
  Sex: Female

DRUGS (9)
  1. DARBEPOETIN ALFA [Suspect]
     Indication: DIALYSIS
     Route: 042
     Dates: start: 20030604
  2. CLONIDINE HCL [Concomitant]
  3. ROCALTROL [Concomitant]
  4. PROZAC [Concomitant]
  5. CLONAZEPAM [Concomitant]
  6. FERROUS SULFATE TAB [Concomitant]
  7. OMEPRAZOLE [Concomitant]
  8. NUTROPIN [Concomitant]
     Route: 058
  9. ENALAPRIL [Concomitant]

REACTIONS (4)
  - FLUID OVERLOAD [None]
  - HYPERTENSION [None]
  - PAIN [None]
  - PYREXIA [None]
